FAERS Safety Report 6227295-6 (Version None)
Quarter: 2009Q2

REPORT INFORMATION
  Report Type: 
  Country: None (occurrence: None)
  Receive Date: 20090612
  Receipt Date: 20090610
  Transmission Date: 20091009
  Serious: Yes (Hospitalization)
  Sender: FDA-Public Use
  Company Number: IT-BRISTOL-MYERS SQUIBB COMPANY-14431647

PATIENT
  Age: 23 Year
  Sex: Male

DRUGS (2)
  1. ABILIFY [Suspect]
     Indication: SCHIZOPHRENIA
     Dosage: DRUG INTERRUPTED ON 04DEC08 AND RESTARTED ON 30JAN09.
     Route: 048
     Dates: start: 20081101
  2. CHLORPROMAZINE [Concomitant]
     Dates: start: 20081101, end: 20081204

REACTIONS (2)
  - AGITATION [None]
  - PSYCHOTIC DISORDER [None]
